FAERS Safety Report 8603236-9 (Version None)
Quarter: 2012Q3

REPORT INFORMATION
  Report Type: 
  Country: None (occurrence: None)
  Receive Date: 20120817
  Receipt Date: 20120808
  Transmission Date: 20120928
  Serious: Yes (Other)
  Sender: FDA-Public Use
  Company Number: US-BAYER-2012-065570

PATIENT
  Age: 65 Year
  Sex: Male

DRUGS (1)
  1. NEXAVAR [Suspect]
     Indication: RENAL CELL CARCINOMA
     Dosage: 400 MG, BID
     Route: 048
     Dates: start: 20120601, end: 20120730

REACTIONS (10)
  - VOMITING [None]
  - MUSCULOSKELETAL PAIN [None]
  - WEIGHT INCREASED [None]
  - TUMOUR NECROSIS [None]
  - PAIN [None]
  - NEOPLASM PROGRESSION [None]
  - NAIL DISORDER [None]
  - PYREXIA [None]
  - NAUSEA [None]
  - DIARRHOEA [None]
